FAERS Safety Report 4854991-5 (Version None)
Quarter: 2005Q4

REPORT INFORMATION
  Report Type: 
  Country: None (occurrence: None)
  Receive Date: 20051214
  Receipt Date: 20051130
  Transmission Date: 20060501
  Serious: Yes (Hospitalization)
  Sender: FDA-Public Use
  Company Number: AZAAU200500444

PATIENT
  Age: 63 Year
  Sex: Male
  Weight: 71.4 kg

DRUGS (16)
  1. AZACITIDINE (AZACITIDINE) (INJECTION) [Suspect]
     Indication: MYELODYSPLASTIC SYNDROME
     Dosage: 37.5 MG/M2 (71 MG, DAILY X 7 DAYS) SUBCUTANEOUS
     Route: 058
     Dates: start: 20051021, end: 20051027
  2. AZACITIDINE (AZACITIDINE) (INJECTION) [Suspect]
     Indication: MYELODYSPLASTIC SYNDROME
     Dosage: 37.5 MG/M2 (71 MG, DAILY X 7 DAYS) SUBCUTANEOUS
     Route: 058
     Dates: start: 20051118, end: 20051124
  3. FOLIC ACID [Concomitant]
  4. HYDROXOCOBALAMIN [Concomitant]
  5. DEHYDROEPIANDROSTERONE (PRASTERONE) [Concomitant]
  6. MOCLOBEMIDE [Concomitant]
  7. AMITRIPTYLINE HCL [Concomitant]
  8. CALCIUM CARBONATE [Concomitant]
  9. MORPHINE SULFATE [Concomitant]
  10. ALPRAZOLAM [Concomitant]
  11. FLUCONAZOLE [Concomitant]
  12. PREDNISOLONE [Concomitant]
  13. INSULIN, NEUTRAL [Concomitant]
  14. METFORMIN HYDROCHLORIDE [Concomitant]
  15. AUGMENTIN DUE (CLAVULIN) (TABLETS) [Concomitant]
  16. ONDANSETRON [Concomitant]

REACTIONS (8)
  - AGITATION [None]
  - ANOREXIA [None]
  - CONFUSIONAL STATE [None]
  - FEBRILE NEUTROPENIA [None]
  - HYPONATRAEMIA [None]
  - NAUSEA [None]
  - VOMITING [None]
  - WEIGHT DECREASED [None]
